FAERS Safety Report 13749745 (Version 1)
Quarter: 2017Q3

REPORT INFORMATION
  Report Type: Spontaneous
  Country: US (occurrence: US)
  Receive Date: 20170713
  Receipt Date: 20170713
  Transmission Date: 20171127
  Serious: Yes (Other)
  Sender: FDA-Public Use
  Company Number: US-TEVA-787002USA

PATIENT
  Sex: Male

DRUGS (5)
  1. OTEZLA [Concomitant]
     Active Substance: APREMILAST
     Indication: PSORIATIC ARTHROPATHY
  2. CARVEDILOL. [Suspect]
     Active Substance: CARVEDILOL
     Dosage: 25 MILLIGRAM DAILY;
     Route: 065
  3. OTEZLA [Concomitant]
     Active Substance: APREMILAST
     Indication: PSORIASIS
  4. CARVEDILOL. [Suspect]
     Active Substance: CARVEDILOL
     Dosage: 37.5 MILLIGRAM DAILY;
     Route: 065
     Dates: start: 201401
  5. ATORVASTATIN [Suspect]
     Active Substance: ATORVASTATIN
     Route: 065
     Dates: start: 201401, end: 201506

REACTIONS (9)
  - Asthenia [Recovered/Resolved]
  - Joint swelling [Unknown]
  - Rash generalised [Unknown]
  - Psoriatic arthropathy [Unknown]
  - Staphylococcal infection [Unknown]
  - Pain [Unknown]
  - Skin lesion [Unknown]
  - Psoriasis [Unknown]
  - Dermatitis contact [Unknown]

NARRATIVE: CASE EVENT DATE: 2016
